FAERS Safety Report 9817705 (Version 1)
Quarter: 2014Q1

REPORT INFORMATION
  Report Type: Spontaneous
  Country: US (occurrence: None)
  Receive Date: 20140110
  Receipt Date: 20140110
  Transmission Date: 20141002
  Serious: No
  Sender: FDA-Public Use
  Company Number: None

PATIENT
  Age: 60 Year
  Sex: Female

DRUGS (1)
  1. PROLIA [Suspect]
     Indication: OSTEOPOROSIS
     Dosage: INJECT 60 MG UNDER THE SKIN ONCE EVERY 6 MONTHS, ADMINISTERED BY OSTEOPOROSIS HEALTH CARE PROFESSIONAL
     Dates: start: 20111212, end: 20131217

REACTIONS (5)
  - Tooth disorder [None]
  - Jaw disorder [None]
  - Infection [None]
  - Fistula [None]
  - Tongue disorder [None]
